FAERS Safety Report 18116664 (Version 1)
Quarter: 2020Q3

REPORT INFORMATION
  Report Type: Spontaneous
  Country: JP (occurrence: JP)
  Receive Date: 20200806
  Receipt Date: 20200806
  Transmission Date: 20201103
  Serious: Yes (Other)
  Sender: FDA-Public Use
  Company Number: JP-MTPC-MTPC2020-0059840

PATIENT
  Age: 94 Year

DRUGS (1)
  1. RADICUT BAG FOR I.V. INFUSION 30MG [Suspect]
     Active Substance: EDARAVONE
     Indication: CEREBRAL INFARCTION
     Route: 041
     Dates: start: 20200723

REACTIONS (1)
  - Cerebral infarction [Unknown]

NARRATIVE: CASE EVENT DATE: 20200801
